FAERS Safety Report 7138265 (Version 3)
Quarter: 2013Q1

REPORT INFORMATION
  Report Type: Spontaneous
  Country: US (occurrence: US)
  Receive Date: 20091002
  Receipt Date: 20130208
  Transmission Date: 20140127
  Serious: No
  Sender: FDA-Public Use
  Company Number: US-ASTRAZENECA-2009UW06477

PATIENT
  Age: 60 Year
  Sex: Female

DRUGS (4)
  1. ARIMIDEX [Suspect]
     Indication: BREAST CANCER
     Route: 048
     Dates: start: 200902
  2. LEXAPRO [Concomitant]
  3. CLONAZEPAM [Concomitant]
  4. ATENOLOL [Concomitant]

REACTIONS (8)
  - Feeling cold [Unknown]
  - Nasopharyngitis [Unknown]
  - Muscle spasms [Unknown]
  - Pain [Unknown]
  - Dyspnoea [Unknown]
  - Adverse drug reaction [Unknown]
  - Arthralgia [Unknown]
  - Asthenia [Unknown]
